FAERS Safety Report 24837516 (Version 1)
Quarter: 2025Q1

REPORT INFORMATION
  Report Type: Spontaneous
  Country: US (occurrence: None)
  Receive Date: 20250112
  Receipt Date: 20250112
  Transmission Date: 20250409
  Serious: Yes (Other)
  Sender: FDA-CTU
  Company Number: None

PATIENT
  Age: 71 Year
  Sex: Female
  Weight: 47.25 kg

DRUGS (2)
  1. XEMBIFY [Suspect]
     Active Substance: HUMAN IMMUNOGLOBULIN G
     Indication: Immunodeficiency common variable
     Dosage: 5 G GRAMS QW SUBCUTANEOUS
     Route: 058
  2. XEMBIFY [Suspect]
     Active Substance: HUMAN IMMUNOGLOBULIN G
     Indication: Immunodeficiency common variable

REACTIONS (3)
  - Rash erythematous [None]
  - Rash pruritic [None]
  - Infusion site reaction [None]

NARRATIVE: CASE EVENT DATE: 20250104
